FAERS Safety Report 9681018 (Version 1)
Quarter: 2013Q4

REPORT INFORMATION
  Report Type: Spontaneous
  Country: US (occurrence: None)
  Receive Date: 20131108
  Receipt Date: 20131108
  Transmission Date: 20140711
  Serious: Yes (Hospitalization)
  Sender: FDA-Public Use
  Company Number: None

PATIENT
  Age: 59 Year
  Sex: Female

DRUGS (1)
  1. HEPSERA [Suspect]
     Route: 048
     Dates: start: 20131101, end: 20131106

REACTIONS (4)
  - Palpitations [None]
  - Musculoskeletal pain [None]
  - Dyspnoea [None]
  - Pain in jaw [None]
